FAERS Safety Report 8978744 (Version 2)
Quarter: 2013Q2

REPORT INFORMATION
  Report Type: Spontaneous
  Country: CA (occurrence: CA)
  Receive Date: 20121221
  Receipt Date: 20130419
  Transmission Date: 20140414
  Serious: Yes (Hospitalization)
  Sender: FDA-Public Use
  Company Number: CA-ABBOTT-12P-028-1022285-00

PATIENT
  Age: 9 Year
  Sex: Male
  Weight: 32.7 kg

DRUGS (6)
  1. BIAXIN [Suspect]
     Indication: PNEUMONIA
     Route: 048
     Dates: start: 20111229, end: 20120101
  2. ADVIL [Concomitant]
     Indication: PAIN
     Dosage: 2 DOSES
     Dates: start: 20111231, end: 20120101
  3. AMPICILLIN [Concomitant]
     Indication: PNEUMONIA
     Route: 042
     Dates: start: 20111229, end: 20111231
  4. DEMO-CINEOL [Concomitant]
     Indication: COUGH
  5. ORABASE [Concomitant]
     Indication: MOUTH ULCERATION
     Dosage: ON THE LIPS AND GUMS
  6. VITAMIN E [Concomitant]
     Indication: MOUTH ULCERATION
     Dosage: ON LIPS AND GUMS

REACTIONS (5)
  - Balanitis [Not Recovered/Not Resolved]
  - Mouth ulceration [Not Recovered/Not Resolved]
  - Skin plaque [Not Recovered/Not Resolved]
  - Aphthous stomatitis [Not Recovered/Not Resolved]
  - Stevens-Johnson syndrome [Not Recovered/Not Resolved]
